FAERS Safety Report 7598552-6 (Version None)
Quarter: 2011Q3

REPORT INFORMATION
  Report Type: 
  Country: None (occurrence: None)
  Receive Date: 20110708
  Receipt Date: 20110627
  Transmission Date: 20111222
  Serious: Yes (Other)
  Sender: FDA-Public Use
  Company Number: US-ELI_LILLY_AND_COMPANY-US201106003274

PATIENT
  Sex: Female

DRUGS (6)
  1. HUMULIN 70/30 [Suspect]
     Dosage: 15 U, EACH EVENING
  2. HYDROCHLOROTHIAZIDE [Concomitant]
     Dosage: UNK
  3. HUMULIN 70/30 [Suspect]
     Indication: TYPE 2 DIABETES MELLITUS
     Dosage: 10 U, EACH MORNING
  4. DORZOLAMIDE [Concomitant]
     Dosage: UNK
     Route: 047
  5. GLYBURIDE [Concomitant]
     Dosage: UNK
  6. METFORMIN HCL [Concomitant]
     Dosage: UNK

REACTIONS (7)
  - PAPILLOEDEMA [None]
  - MACULAR OEDEMA [None]
  - EYE INJURY [None]
  - VISUAL IMPAIRMENT [None]
  - PROCEDURAL COMPLICATION [None]
  - EYE INFLAMMATION [None]
  - EYE OEDEMA [None]
